FAERS Safety Report 13616374 (Version 1)
Quarter: 2017Q2

REPORT INFORMATION
  Report Type: Spontaneous
  Country: PE (occurrence: PE)
  Receive Date: 20170606
  Receipt Date: 20170606
  Transmission Date: 20170830
  Serious: Yes (Other)
  Sender: FDA-Public Use
  Company Number: PE-ROCHE-1944071

PATIENT
  Sex: Female

DRUGS (2)
  1. XOLAIR [Suspect]
     Active Substance: OMALIZUMAB
     Indication: ASTHMA
     Route: 065
  2. XOLAIR [Suspect]
     Active Substance: OMALIZUMAB
     Indication: IMMUNOGLOBULINS INCREASED
     Dosage: ONE APPLICATION OF ONE AMPOULE
     Route: 065

REACTIONS (4)
  - Discomfort [Unknown]
  - Choking [Unknown]
  - Malaise [Unknown]
  - Asthmatic crisis [Unknown]
